FAERS Safety Report 9233329 (Version 3)
Quarter: 2013Q2

REPORT INFORMATION
  Report Type: Spontaneous
  Country: DE (occurrence: None)
  Receive Date: 20130412
  Receipt Date: 20130507
  Transmission Date: 20140414
  Serious: Yes (Other)
  Sender: FDA-Public Use
  Company Number: 1304-482

PATIENT
  Age: 88 Year
  Sex: Female

DRUGS (1)
  1. EYLEA [Suspect]
     Indication: AGE-RELATED MACULAR DEGENERATION
     Dates: start: 20130405, end: 20130405

REACTIONS (5)
  - Vitreous opacities [None]
  - Blindness [None]
  - Toxicity to various agents [None]
  - Pseudoendophthalmitis [None]
  - Product quality issue [None]
